FAERS Safety Report 7549173-2 (Version None)
Quarter: 2011Q2

REPORT INFORMATION
  Report Type: 
  Country: None (occurrence: None)
  Receive Date: 20110615
  Receipt Date: 20110602
  Transmission Date: 20111010
  Serious: Yes (Other)
  Sender: FDA-Public Use
  Company Number: PHHY2011CA49449

PATIENT
  Sex: Female

DRUGS (5)
  1. OXAZEPAM [Concomitant]
  2. CRESTOR [Concomitant]
  3. ZOLEDRONIC ACID [Suspect]
     Indication: OSTEOPOROSIS
     Dosage: 5 MG, UNK
     Route: 042
     Dates: start: 20100203
  4. VITAMIN D [Concomitant]
  5. HYDROCHLOROTHIAZIDE [Concomitant]

REACTIONS (3)
  - PALPITATIONS [None]
  - BLOOD CALCIUM DECREASED [None]
  - DYSPNOEA [None]
